FAERS Safety Report 5621775-X (Version None)
Quarter: 2008Q1

REPORT INFORMATION
  Report Type: 
  Country: None (occurrence: None)
  Receive Date: 20080211
  Receipt Date: 20080201
  Transmission Date: 20080703
  Serious: Yes (Other)
  Sender: FDA-Public Use
  Company Number: PHBS2008NZ01833

PATIENT
  Sex: Female

DRUGS (1)
  1. VOLTAREN [Suspect]
     Indication: BACK PAIN
     Dosage: 12.5 MG, Q6H
     Route: 048
     Dates: start: 20080130, end: 20080202

REACTIONS (3)
  - CONTUSION [None]
  - DRY SKIN [None]
  - OCULAR HYPERAEMIA [None]
